FAERS Safety Report 10946808 (Version 1)
Quarter: 2015Q1

REPORT INFORMATION
  Report Type: Spontaneous
  Country: US (occurrence: US)
  Receive Date: 20150323
  Receipt Date: 20150323
  Transmission Date: 20150721
  Serious: No
  Sender: FDA-Public Use
  Company Number: US-PFIZER INC-2015097347

PATIENT
  Age: 54 Year
  Sex: Female
  Weight: 120 kg

DRUGS (1)
  1. ADVIL [Suspect]
     Active Substance: IBUPROFEN
     Dosage: 800 MG (200 MG CAPSULES 4 AT A TIME), 4X/DAY
     Route: 048
     Dates: start: 20150316

REACTIONS (3)
  - Abdominal discomfort [Unknown]
  - Intentional product misuse [Unknown]
  - Drug ineffective [Unknown]
